FAERS Safety Report 9843523 (Version 1)
Quarter: 2013Q4

REPORT INFORMATION
  Report Type: Spontaneous
  Country: US (occurrence: None)
  Receive Date: 20131223
  Receipt Date: 20131223
  Transmission Date: 20140711
  Serious: No
  Sender: FDA-Public Use
  Company Number: 218224LEO

PATIENT
  Age: 61 Year
  Sex: Male

DRUGS (1)
  1. PICATO (0.05, GEL) [Suspect]
     Indication: PRECANCEROUS SKIN LESION
     Dosage: TOPICAL
     Route: 061
     Dates: start: 20120618, end: 20120619

REACTIONS (8)
  - Application site burn [None]
  - Application site pain [None]
  - Application site erythema [None]
  - Application site vesicles [None]
  - Dermatitis [None]
  - Swelling [None]
  - Incorrect dose administered [None]
  - Off label use [None]
